FAERS Safety Report 20076431 (Version 3)
Quarter: 2022Q1

REPORT INFORMATION
  Report Type: Report from Study
  Country: AT (occurrence: AT)
  Receive Date: 20211116
  Receipt Date: 20220104
  Transmission Date: 20220423
  Serious: Yes (Death)
  Sender: FDA-Public Use
  Company Number: AT-ROCHE-2849249

PATIENT
  Age: 66 Year
  Sex: Female
  Weight: 80.4 kg

DRUGS (20)
  1. TRASTUZUMAB [Suspect]
     Active Substance: TRASTUZUMAB
     Indication: HER2 positive breast cancer
     Dosage: 624 MG, 1X/DAY, MOST RECENT DOSE PRIOR TO THE EVENT: 30DEC2020
     Route: 042
     Dates: start: 20170224
  2. DOXORUBICIN HYDROCHLORIDE [Suspect]
     Active Substance: DOXORUBICIN HYDROCHLORIDE
     Indication: HER2 positive breast cancer
     Route: 042
     Dates: start: 20210608, end: 20210608
  3. DOCETAXEL [Suspect]
     Active Substance: DOCETAXEL
     Indication: HER2 positive breast cancer
     Dosage: 190 MG, EVERY 3 WEEKS, MOST RECENT DOSE PRIOR TO THE EVENT: 09JUN2017
     Route: 042
     Dates: start: 20170224
  4. LAPATINIB [Suspect]
     Active Substance: LAPATINIB
     Indication: HER2 positive breast cancer
     Dosage: 1250 MG, 1X/DAY,MOST RECENT DOSE: 07JAN2020
     Route: 048
     Dates: start: 20191002
  5. PERTUZUMAB [Suspect]
     Active Substance: PERTUZUMAB
     Indication: HER2 positive breast cancer
     Dosage: 840 MG, 1X/DAY, MOST RECENT DOSE PRIOR TO THE EVENT: 22APR2020
     Route: 042
     Dates: start: 20170224
  6. ADO-TRASTUZUMAB EMTANSINE [Suspect]
     Active Substance: ADO-TRASTUZUMAB EMTANSINE
     Indication: HER2 positive breast cancer
     Dosage: 270 MG, EVERY 3 WEEKS, MOST RECENT DOSE ON: 09SEP2019
     Route: 042
     Dates: start: 20190306
  7. VINORELBINE [Suspect]
     Active Substance: VINORELBINE TARTRATE
     Indication: HER2 positive breast cancer
     Dosage: 45 MG, EVERY 3 WEEKS, MOST RECENT DOSE ON: 22JUL2020
     Route: 042
     Dates: start: 20200422
  8. CAPECITABINE [Suspect]
     Active Substance: CAPECITABINE
     Indication: HER2 positive breast cancer
     Dosage: 3500 MG, 1X/DAY, MOST RECENT DOSE PRIOR TO THE EVENT: 30DEC2020
     Route: 048
     Dates: start: 20191002
  9. FULVESTRANT [Suspect]
     Active Substance: FULVESTRANT
     Indication: HER2 positive breast cancer
     Dosage: 500 MG CYCLIC (EVERY5 WK);MOST RECENT DOSE:16NOV2017
     Route: 058
     Dates: start: 20171002
  10. PARACODIN [DIHYDROCODEINE] [Concomitant]
     Indication: Cough
     Dates: start: 20210324, end: 20210427
  11. PARACODIN [DIHYDROCODEINE] [Concomitant]
     Dates: start: 20210324, end: 20210427
  12. EUTHYROX [Concomitant]
     Active Substance: LEVOTHYROXINE SODIUM
     Dosage: UNK
     Dates: start: 20170303
  13. XGEVA [Concomitant]
     Active Substance: DENOSUMAB
     Dosage: UNK
     Dates: start: 20170202
  14. EDOXABAN TOSYLATE [Concomitant]
     Active Substance: EDOXABAN TOSYLATE
     Dosage: UNK
     Dates: start: 20200613
  15. CARBOXYMETHYLCELLULOSE SODIUM [Concomitant]
     Active Substance: CARBOXYMETHYLCELLULOSE SODIUM
     Dosage: UNK
     Dates: start: 20210105
  16. NOVALGIN (METAMIZOLE SODIUM) [Concomitant]
     Active Substance: METAMIZOLE SODIUM
     Dosage: UNK
     Dates: start: 20210117, end: 20210315
  17. VITAMINS WITH MINERALS [Concomitant]
     Active Substance: MINERALS\VITAMINS
     Dosage: UNK
     Dates: start: 20170203
  18. PREGABALIN [Concomitant]
     Active Substance: PREGABALIN
     Dosage: UNK
     Dates: start: 20190821
  19. PANTOPRAZOLE [Concomitant]
     Active Substance: PANTOPRAZOLE
     Indication: Gastrointestinal disorder
     Dates: start: 20210317, end: 20210607
  20. OLEOVIT-D3 [Concomitant]
     Dosage: UNK
     Dates: start: 20170329

REACTIONS (3)
  - General physical health deterioration [Fatal]
  - General physical health deterioration [Fatal]
  - General physical health deterioration [Recovered/Resolved]

NARRATIVE: CASE EVENT DATE: 20210303
